FAERS Safety Report 22786493 (Version 5)
Quarter: 2024Q1

REPORT INFORMATION
  Report Type: Spontaneous
  Country: US (occurrence: US)
  Receive Date: 20230804
  Receipt Date: 20240314
  Transmission Date: 20240409
  Serious: Yes (Hospitalization, Other)
  Sender: FDA-Public Use
  Company Number: US-ULTRAGENYX PHARMACEUTICAL INC.-US-UGX-23-00806

PATIENT
  Sex: Male
  Weight: 16.5 kg

DRUGS (7)
  1. DOJOLVI [Suspect]
     Active Substance: TRIHEPTANOIN
     Indication: Pyruvate carboxylase deficiency
     Dosage: 8 MILLILITER, QID
     Route: 048
  2. DOJOLVI [Suspect]
     Active Substance: TRIHEPTANOIN
     Dosage: 8 MILLILITER, QID
     Route: 048
  3. IRON [Concomitant]
     Active Substance: IRON
     Indication: Product used for unknown indication
     Dosage: 18 MILLIGRAM
  4. L-CARNITINE [LEVOCARNITINE HYDROCHLORIDE] [Concomitant]
     Indication: Product used for unknown indication
     Dosage: 300 MILLIGRAM, TID, 3ML
     Route: 048
  5. VITAMINS [Concomitant]
     Active Substance: VITAMINS
     Indication: Product used for unknown indication
     Dosage: UNK
  6. POTASSIUM CITRATE [Concomitant]
     Active Substance: POTASSIUM CITRATE
     Indication: Product used for unknown indication
     Dosage: 334 MG-1100 MG/5 ML ORAL LIQUID
     Route: 048
  7. TAMSULOSIN [Concomitant]
     Active Substance: TAMSULOSIN
     Indication: Product used for unknown indication
     Dosage: 0.4 MILLIGRAM, QD, CAPSULE

REACTIONS (5)
  - Nephrolithiasis [Unknown]
  - Gastroenteritis viral [Unknown]
  - Surgery [Unknown]
  - Diarrhoea [Unknown]
  - Blood lactic acid decreased [Unknown]

NARRATIVE: CASE EVENT DATE: 20230101
